FAERS Safety Report 10039440 (Version 2)
Quarter: 2015Q2

REPORT INFORMATION
  Report Type: Spontaneous
  Country: DE (occurrence: DE)
  Receive Date: 20140326
  Receipt Date: 20150404
  Transmission Date: 20150821
  Serious: Yes (Other)
  Sender: FDA-Public Use
  Company Number: PHHY2014DE034388

PATIENT
  Age: 75 Year
  Sex: Male

DRUGS (1)
  1. DICLOFENAC [Suspect]
     Active Substance: DICLOFENAC
     Indication: ARTHRITIS
     Route: 065

REACTIONS (5)
  - Large intestinal ulcer [Recovered/Resolved]
  - Inflammation [Unknown]
  - Occult blood positive [Recovered/Resolved]
  - Gastrointestinal disorder [Recovered/Resolved]
  - Anaemia [Recovered/Resolved]
